FAERS Safety Report 15645642 (Version 3)
Quarter: 2019Q1

REPORT INFORMATION
  Report Type: Spontaneous
  Country: US (occurrence: US)
  Receive Date: 20181121
  Receipt Date: 20190204
  Transmission Date: 20190417
  Serious: Yes (Other)
  Sender: FDA-Public Use
  Company Number: US-GLAXOSMITHKLINE-US2018205673

PATIENT
  Age: 64 Year
  Sex: Male

DRUGS (1)
  1. VENTOLIN HFA [Suspect]
     Active Substance: ALBUTEROL SULFATE
     Indication: PRODUCT USED FOR UNKNOWN INDICATION
     Dosage: UNK UNK, U

REACTIONS (9)
  - Tongue erythema [Recovering/Resolving]
  - Heart rate increased [Recovering/Resolving]
  - Underdose [Unknown]
  - Tongue discolouration [Recovering/Resolving]
  - Glossodynia [Recovering/Resolving]
  - Oxygen saturation decreased [Recovering/Resolving]
  - Dysgeusia [Recovering/Resolving]
  - Product complaint [Unknown]
  - Corrosive oropharyngeal injury [Recovering/Resolving]

NARRATIVE: CASE EVENT DATE: 201811
